FAERS Safety Report 6875281-5 (Version None)
Quarter: 2010Q3

REPORT INFORMATION
  Report Type: 
  Country: None (occurrence: None)
  Receive Date: 20100727
  Receipt Date: 20100715
  Transmission Date: 20110219
  Serious: Yes (Life-Threatening, Other)
  Sender: FDA-Public Use
  Company Number: JP-JNJFOC-20100506427

PATIENT
  Sex: Female

DRUGS (12)
  1. REMICADE [Suspect]
     Indication: COLLAGEN DISORDER
     Route: 042
  2. REMICADE [Suspect]
     Route: 042
  3. ISONIAZID [Suspect]
     Indication: DISSEMINATED TUBERCULOSIS
  4. STREPTOMYCIN [Suspect]
     Indication: DISSEMINATED TUBERCULOSIS
  5. RIFAMPIN [Suspect]
     Indication: DISSEMINATED TUBERCULOSIS
  6. CIPROFLOXACIN [Suspect]
     Indication: DISSEMINATED TUBERCULOSIS
  7. ETHAMBUTOL HYDROCHLORIDE [Suspect]
     Indication: DISSEMINATED TUBERCULOSIS
  8. PYRAZINAMIDE [Suspect]
     Indication: DISSEMINATED TUBERCULOSIS
  9. ARICEPT [Concomitant]
     Indication: HYPERTENSION
     Route: 048
  10. LASIX [Concomitant]
     Indication: HYPERTENSION
     Route: 048
  11. MUCOSOLVAN [Concomitant]
     Dosage: 3 TABLETS DAILY
     Route: 048
  12. ITRIZOLE [Concomitant]
     Dosage: 3 TABLETS
     Route: 048

REACTIONS (8)
  - DEPRESSED LEVEL OF CONSCIOUSNESS [None]
  - DERMATITIS EXFOLIATIVE [None]
  - DISSEMINATED TUBERCULOSIS [None]
  - DRUG HYPERSENSITIVITY [None]
  - FAECES DISCOLOURED [None]
  - HEPATIC FUNCTION ABNORMAL [None]
  - PNEUMONIA [None]
  - PYREXIA [None]
